FAERS Safety Report 5242990-3 (Version None)
Quarter: 2007Q1

REPORT INFORMATION
  Report Type: 
  Country: None (occurrence: None)
  Receive Date: 20070215
  Receipt Date: 20070126
  Transmission Date: 20070707
  Serious: Yes (Hospitalization)
  Sender: FDA-Public Use
  Company Number: 070102610

PATIENT
  Age: 76 Year
  Sex: Female

DRUGS (5)
  1. MUCINEX DM [Suspect]
     Indication: NASOPHARYNGITIS
     Dosage: ITABL, BID, ORAL
     Route: 048
     Dates: start: 20070119, end: 20070120
  2. LANTUS INSULIN (UNK) [Concomitant]
  3. AMARYL [Concomitant]
  4. NORVASC [Concomitant]
  5. TOPROL XL (METOPROLOL SUCCINATE0 [Concomitant]

REACTIONS (6)
  - CEREBROVASCULAR ACCIDENT [None]
  - EPISTAXIS [None]
  - EXCORIATION [None]
  - FALL [None]
  - INFECTION [None]
  - MUSCULAR WEAKNESS [None]
